FAERS Safety Report 25335919 (Version 2)
Quarter: 2025Q2

REPORT INFORMATION
  Report Type: Spontaneous
  Country: US (occurrence: US)
  Receive Date: 20250520
  Receipt Date: 20250521
  Transmission Date: 20250717
  Serious: No
  Sender: NOVARTIS
  Company Number: US-002147023-NVSC2025US077979

PATIENT
  Sex: Female

DRUGS (1)
  1. LEQVIO [Suspect]
     Active Substance: INCLISIRAN SODIUM
     Indication: Product used for unknown indication
     Route: 065

REACTIONS (10)
  - Arthralgia [Unknown]
  - Pain in extremity [Unknown]
  - Injection site reaction [Unknown]
  - Injection site swelling [Unknown]
  - Pain [Unknown]
  - Injection site warmth [Unknown]
  - Mobility decreased [Unknown]
  - Neck pain [Unknown]
  - Condition aggravated [Unknown]
  - Joint swelling [Unknown]
